FAERS Safety Report 8102990-2 (Version None)
Quarter: 2012Q1

REPORT INFORMATION
  Report Type: 
  Country: None (occurrence: None)
  Receive Date: 20120127
  Receipt Date: 20120117
  Transmission Date: 20120608
  Serious: Yes (Hospitalization)
  Sender: FDA-Public Use
  Company Number: 1169494

PATIENT
  Age: 77 Year
  Sex: Male

DRUGS (3)
  1. DEXAMETHASONE SODIUM PHOSPHATE [Concomitant]
  2. ZOFRAN [Concomitant]
  3. OXALIPLATIN [Suspect]
     Indication: COLON CANCER
     Dosage: 150 MG MILLIGRAM(S), INTRAVENOUS (NOT OTHERWISE SPECIFIED)
     Route: 042
     Dates: start: 20111228, end: 20111228

REACTIONS (2)
  - EVANS SYNDROME [None]
  - DIALYSIS [None]
